FAERS Safety Report 23652520 (Version 1)
Quarter: 2024Q1

REPORT INFORMATION
  Report Type: Spontaneous
  Country: US (occurrence: US)
  Receive Date: 20240320
  Receipt Date: 20240320
  Transmission Date: 20240410
  Serious: Yes (Death, Hospitalization, Other)
  Sender: FDA-Public Use
  Company Number: US-Accord-413856

PATIENT
  Age: 45 Year
  Sex: Male

DRUGS (10)
  1. BUSULFAN [Suspect]
     Active Substance: BUSULFAN
     Indication: Allogenic stem cell transplantation
  2. FLUDARABINE [Suspect]
     Active Substance: FLUDARABINE PHOSPHATE
     Indication: Allogenic stem cell transplantation
  3. CARBOPLATIN [Concomitant]
     Active Substance: CARBOPLATIN
     Indication: Chronic lymphocytic leukaemia stage 3
  4. ETOPOSIDE [Concomitant]
     Active Substance: ETOPOSIDE
     Indication: Chronic lymphocytic leukaemia stage 3
  5. RITUXIMAB [Concomitant]
     Active Substance: RITUXIMAB
     Indication: Chronic lymphocytic leukaemia stage 3
  6. IFOSFAMIDE [Concomitant]
     Active Substance: IFOSFAMIDE
     Indication: Chronic lymphocytic leukaemia stage 3
  7. BRENTUXIMAB VEDOTIN [Concomitant]
     Active Substance: BRENTUXIMAB VEDOTIN
     Indication: Chronic lymphocytic leukaemia stage 3
  8. DOXORUBICIN [Concomitant]
     Active Substance: DOXORUBICIN
     Indication: Chronic lymphocytic leukaemia stage 3
  9. VINBLASTINE [Concomitant]
     Active Substance: VINBLASTINE
     Indication: Chronic lymphocytic leukaemia stage 3
  10. DACARBAZINE [Concomitant]
     Active Substance: DACARBAZINE
     Indication: Chronic lymphocytic leukaemia stage 3

REACTIONS (3)
  - Respiratory failure [Fatal]
  - Acute graft versus host disease in intestine [Unknown]
  - Bronchopulmonary aspergillosis [Unknown]
